FAERS Safety Report 5719864-4 (Version None)
Quarter: 2008Q2

REPORT INFORMATION
  Report Type: 
  Country: None (occurrence: None)
  Receive Date: 20080428
  Receipt Date: 20080417
  Transmission Date: 20081010
  Serious: Yes (Death, Hospitalization)
  Sender: FDA-Public Use
  Company Number: TW-MERCK-0804USA04639

PATIENT
  Age: 47 Year
  Sex: Male

DRUGS (2)
  1. PRIMAXIN [Suspect]
     Indication: PYREXIA
     Route: 065
     Dates: start: 20070101
  2. VORICONAZOLE [Concomitant]
     Indication: PYREXIA
     Route: 065
     Dates: start: 20070101

REACTIONS (8)
  - ABSCESS FUNGAL [None]
  - ACUTE RESPIRATORY FAILURE [None]
  - BRONCHOPULMONARY ASPERGILLOSIS [None]
  - DRUG INEFFECTIVE [None]
  - HAEMODYNAMIC INSTABILITY [None]
  - LUNG ABSCESS [None]
  - MULTI-ORGAN FAILURE [None]
  - PYREXIA [None]
